FAERS Safety Report 9708401 (Version 1)
Quarter: 2013Q4

REPORT INFORMATION
  Report Type: Spontaneous
  Country: US (occurrence: US)
  Receive Date: 20131125
  Receipt Date: 20131125
  Transmission Date: 20140711
  Serious: Yes (Other)
  Sender: FDA-Public Use
  Company Number: US-TEVA-445754USA

PATIENT
  Age: 38 Year
  Sex: Male

DRUGS (1)
  1. TEMOZOLOMIDE [Suspect]
     Indication: OLIGODENDROGLIOMA
     Dosage: 140 MILLIGRAM DAILY;
     Route: 065

REACTIONS (1)
  - Diabetes insipidus [Recovered/Resolved]
